FAERS Safety Report 5242798-9 (Version None)
Quarter: 2007Q1

REPORT INFORMATION
  Report Type: 
  Country: None (occurrence: None)
  Receive Date: 20061201
  Receipt Date: 20060905
  Transmission Date: 20070707
  Serious: No
  Sender: FDA-Public Use
  Company Number: 2006PV013767

PATIENT
  Age: 66 Year
  Sex: Female
  Weight: 96.1626 kg

DRUGS (14)
  1. BYETTA [Suspect]
     Indication: DIABETES MELLITUS NON-INSULIN-DEPENDENT
     Dosage: SEE IMAGE
     Route: 058
     Dates: start: 20060508
  2. BYETTA [Suspect]
     Indication: DIABETES MELLITUS NON-INSULIN-DEPENDENT
     Dosage: SEE IMAGE
     Route: 058
     Dates: start: 20060601
  3. BYETTA [Suspect]
  4. GLIMEPIRIDE [Concomitant]
  5. ACTOS /USA/ [Concomitant]
  6. ALLERGY MEDICATION [Concomitant]
  7. THYROID SUPPLEMENT [Concomitant]
  8. NEXIUM [Concomitant]
  9. BLOOD PRESSURE MEDICATION [Concomitant]
  10. ZETIA [Concomitant]
  11. AVALIDE [Concomitant]
  12. MOBIC [Concomitant]
  13. SPIRONOLACTONE [Concomitant]
  14. SYNTHROID [Concomitant]

REACTIONS (7)
  - BLOOD GLUCOSE INCREASED [None]
  - DECREASED APPETITE [None]
  - INJECTION SITE BRUISING [None]
  - INJECTION SITE HAEMORRHAGE [None]
  - INJECTION SITE IRRITATION [None]
  - INJECTION SITE PAIN [None]
  - WEIGHT DECREASED [None]
